FAERS Safety Report 25759573 (Version 1)
Quarter: 2025Q3

REPORT INFORMATION
  Report Type: Spontaneous
  Country: US (occurrence: US)
  Receive Date: 20250904
  Receipt Date: 20250904
  Transmission Date: 20251021
  Serious: No
  Sender: ELI LILLY AND COMPANY
  Company Number: US-ELI_LILLY_AND_COMPANY-US202508025612

PATIENT
  Sex: Female

DRUGS (1)
  1. TALTZ [Suspect]
     Active Substance: IXEKIZUMAB
     Indication: Psoriasis
     Route: 065
     Dates: start: 202507

REACTIONS (6)
  - Dry skin [Unknown]
  - Rosacea [Unknown]
  - Rash [Unknown]
  - Skin discolouration [Unknown]
  - Skin burning sensation [Unknown]
  - Pruritus [Unknown]
